FAERS Safety Report 9652589 (Version 1)
Quarter: 2013Q4

REPORT INFORMATION
  Report Type: Spontaneous
  Country: US (occurrence: US)
  Receive Date: 20131029
  Receipt Date: 20131029
  Transmission Date: 20140711
  Serious: No
  Sender: FDA-Public Use
  Company Number: US-BIOGENIDEC-2013BI076375

PATIENT
  Age: 49 Year
  Sex: Female

DRUGS (5)
  1. TECFIDERA [Suspect]
     Indication: MULTIPLE SCLEROSIS
     Route: 048
  2. CLONAZEPAM [Concomitant]
  3. OXYCODONE HCL [Concomitant]
  4. AMITRIPTYLINE HCL [Concomitant]
  5. LYRICA [Concomitant]

REACTIONS (5)
  - Hyperhidrosis [Unknown]
  - Constipation [Unknown]
  - Flushing [Unknown]
  - Feeling hot [Unknown]
  - Erythema [Unknown]
